FAERS Safety Report 6124224-0 (Version None)
Quarter: 2009Q1

REPORT INFORMATION
  Report Type: 
  Country: None (occurrence: None)
  Receive Date: 20090317
  Receipt Date: 20090303
  Transmission Date: 20090719
  Serious: Yes (Hospitalization)
  Sender: FDA-Public Use
  Company Number: 205882

PATIENT
  Age: 71 Year
  Sex: Female

DRUGS (2)
  1. LIDOCAINE HCL [Suspect]
     Indication: LOCAL ANAESTHESIA
     Dosage: ONCE, INTRA-ARTICULAR
     Route: 014
  2. METHYLPREDNISOLONE ACETATE [Suspect]
     Indication: ARTHROPATHY
     Dosage: ONCE, INTRA-ARTICULAR
     Route: 014
     Dates: start: 20090116, end: 20090116

REACTIONS (5)
  - ABSCESS SOFT TISSUE [None]
  - BURSITIS [None]
  - CULTURE POSITIVE [None]
  - INJECTION SITE INFECTION [None]
  - STAPHYLOCOCCAL INFECTION [None]
